FAERS Safety Report 6300569-6 (Version None)
Quarter: 2009Q3

REPORT INFORMATION
  Report Type: 
  Country: None (occurrence: None)
  Receive Date: 20090806
  Receipt Date: 20090610
  Transmission Date: 20100115
  Serious: No
  Sender: FDA-Public Use
  Company Number: US-ABBOTT-09P-163-0579679-00

PATIENT
  Sex: Female
  Weight: 99.88 kg

DRUGS (8)
  1. DEPAKOTE ER [Suspect]
     Indication: BIPOLAR I DISORDER
     Route: 048
     Dates: start: 20090610
  2. DEPAKOTE ER [Suspect]
     Route: 048
     Dates: end: 20090610
  3. SEROQUEL [Concomitant]
     Indication: AFFECTIVE DISORDER
     Dosage: 1 QAM, 1/2 QHS
     Route: 048
  4. SERTRALINE [Concomitant]
     Indication: AFFECTIVE DISORDER
     Route: 048
  5. LORAZEPAM [Concomitant]
     Indication: AFFECTIVE DISORDER
     Route: 048
  6. ARICEPT [Concomitant]
     Indication: DRUG USE FOR UNKNOWN INDICATION
     Route: 048
  7. BENZTROPINE MESYLATE [Concomitant]
     Indication: DRUG USE FOR UNKNOWN INDICATION
     Route: 048
  8. CHLORPROMAZINE [Concomitant]
     Indication: AFFECTIVE DISORDER
     Route: 048

REACTIONS (3)
  - NEUTROPHIL COUNT DECREASED [None]
  - PLATELET COUNT DECREASED [None]
  - WHITE BLOOD CELL COUNT DECREASED [None]
